FAERS Safety Report 7179798-8 (Version None)
Quarter: 2010Q4

REPORT INFORMATION
  Report Type: 
  Country: None (occurrence: None)
  Receive Date: 20101208
  Receipt Date: 20101203
  Transmission Date: 20110411
  Serious: Yes (Death, Life-Threatening)
  Sender: FDA-Public Use
  Company Number: 20108838

PATIENT
  Sex: Female

DRUGS (1)
  1. LIORESAL [Suspect]
     Indication: MUSCLE SPASTICITY
     Dosage: 443.1 MCG, DAILY, INTRATHECAL
     Route: 037

REACTIONS (10)
  - CARDIO-RESPIRATORY ARREST [None]
  - CEREBRAL PALSY [None]
  - DISEASE COMPLICATION [None]
  - HYPERTONIA [None]
  - IRRITABILITY [None]
  - JOINT DISLOCATION [None]
  - MUSCLE TIGHTNESS [None]
  - NO THERAPEUTIC RESPONSE [None]
  - SCOLIOSIS [None]
  - URINARY TRACT INFECTION [None]
